FAERS Safety Report 5089770-X (Version None)
Quarter: 2006Q3

REPORT INFORMATION
  Report Type: 
  Country: None (occurrence: None)
  Receive Date: 20060731
  Receipt Date: 20060306
  Transmission Date: 20061208
  Serious: Yes (Other)
  Sender: FDA-Public Use
  Company Number: US200603001619

PATIENT
  Sex: Female

DRUGS (3)
  1. FORTEO [Suspect]
     Indication: OSTEOPOROSIS
     Dates: start: 20051101
  2. FORTEO [Suspect]
     Indication: OSTEOPOROSIS
     Dates: start: 20060305
  3. FORTEO [Concomitant]

REACTIONS (3)
  - FEELING ABNORMAL [None]
  - INJECTION SITE HAEMORRHAGE [None]
  - SYNCOPE [None]
